FAERS Safety Report 8621668-X (Version None)
Quarter: 2012Q3

REPORT INFORMATION
  Report Type: 
  Country: None (occurrence: None)
  Receive Date: 20120821
  Receipt Date: 20120821
  Transmission Date: 20120928
  Serious: Yes (Death)
  Sender: FDA-Public Use
  Company Number: None

PATIENT
  Sex: Male
  Weight: 79.9 kg

DRUGS (5)
  1. OXYGEN [Concomitant]
  2. REGULAR INSULIN [Concomitant]
  3. LABETALOL HCL [Concomitant]
  4. PANTOPRAZOLE [Concomitant]
  5. ACTIVASE [Suspect]
     Indication: ISCHAEMIC STROKE
     Dosage: 0 .9MG/KG ONCE IV DRIP
     Route: 041
     Dates: start: 20111231, end: 20111231

REACTIONS (3)
  - BRADYCARDIA [None]
  - COUGH [None]
  - CEREBRAL HAEMORRHAGE [None]
